FAERS Safety Report 9122250 (Version 1)
Quarter: 2013Q1

REPORT INFORMATION
  Report Type: Spontaneous
  Country: RU (occurrence: RU)
  Receive Date: 20130227
  Receipt Date: 20130227
  Transmission Date: 20140127
  Serious: Yes (Other)
  Sender: FDA-Public Use
  Company Number: PHHY2013RU007789

PATIENT
  Sex: 0

DRUGS (1)
  1. TRILEPTAL [Suspect]
     Dosage: 60 MG, UNK
     Route: 048

REACTIONS (2)
  - Convulsion [Unknown]
  - Drug ineffective [Unknown]
